FAERS Safety Report 21260500 (Version 2)
Quarter: 2022Q4

REPORT INFORMATION
  Report Type: Spontaneous
  Country: GB (occurrence: GB)
  Receive Date: 20220826
  Receipt Date: 20221104
  Transmission Date: 20230113
  Serious: Yes (Death)
  Sender: FDA-Public Use
  Company Number: GB-ROCHE-2555682

PATIENT
  Age: 32 Year
  Sex: Male

DRUGS (4)
  1. TOBRAMYCIN [Suspect]
     Active Substance: TOBRAMYCIN
     Indication: Product used for unknown indication
     Route: 065
  2. COLISTIMETHATE SODIUM [Suspect]
     Active Substance: COLISTIMETHATE SODIUM
     Indication: Product used for unknown indication
     Route: 065
  3. PULMOZYME [Suspect]
     Active Substance: DORNASE ALFA
     Indication: Cystic fibrosis
     Dosage: 2.5 ML DAILY; UNIT DOSE : 2.5  ML, FREQUENCY ; 1, FREQUENCY TIME : 1 DAYS,
     Route: 065
  4. PULMOZYME [Suspect]
     Active Substance: DORNASE ALFA
     Route: 065

REACTIONS (3)
  - Death [Fatal]
  - Chest discomfort [Unknown]
  - Nasopharyngitis [Unknown]
